FAERS Safety Report 4938381-2 (Version None)
Quarter: 2006Q1

REPORT INFORMATION
  Report Type: 
  Country: None (occurrence: None)
  Receive Date: 20060308
  Receipt Date: 20060308
  Transmission Date: 20060701
  Serious: Yes (Hospitalization)
  Sender: FDA-Public Use
  Company Number: None

PATIENT
  Age: 78 Year
  Sex: Male

DRUGS (8)
  1. CETUXIMAB [Suspect]
     Indication: NEOPLASM MALIGNANT
     Dosage: 400MG/M2 = 712MG IV;  250MG/M2 = 445MG IV
     Route: 042
     Dates: start: 20051202
  2. CETUXIMAB [Suspect]
     Indication: NEOPLASM MALIGNANT
     Dosage: 400MG/M2 = 712MG IV;  250MG/M2 = 445MG IV
     Route: 042
     Dates: start: 20051209
  3. CETUXIMAB [Suspect]
     Indication: NEOPLASM MALIGNANT
     Dosage: 400MG/M2 = 712MG IV;  250MG/M2 = 445MG IV
     Route: 042
     Dates: start: 20051216
  4. CETUXIMAB [Suspect]
     Indication: NEOPLASM MALIGNANT
     Dosage: 400MG/M2 = 712MG IV;  250MG/M2 = 445MG IV
     Route: 042
     Dates: start: 20051223
  5. RADIATION [Concomitant]
  6. CETUXIMAB [Concomitant]
  7. PACLITAXEL [Concomitant]
  8. CARBOPLATIN [Concomitant]

REACTIONS (1)
  - PNEUMONIA [None]
